FAERS Safety Report 16067707 (Version 1)
Quarter: 2019Q1

REPORT INFORMATION
  Report Type: Spontaneous
  Country: JP (occurrence: JP)
  Receive Date: 20190313
  Receipt Date: 20190313
  Transmission Date: 20190418
  Serious: Yes (Other)
  Sender: FDA-Public Use
  Company Number: JP-BRISTOL-MYERS SQUIBB COMPANY-BMS-2019-024984

PATIENT
  Age: 76 Year
  Sex: Male

DRUGS (1)
  1. NIVOLUMAB [Suspect]
     Active Substance: NIVOLUMAB
     Indication: GASTRIC CANCER
     Route: 065

REACTIONS (4)
  - Cholangitis [Recovering/Resolving]
  - Hepatitis [Recovering/Resolving]
  - Drug-induced liver injury [Recovering/Resolving]
  - Hypersensitivity [Recovering/Resolving]
